FAERS Safety Report 10029476 (Version 1)
Quarter: 2014Q1

REPORT INFORMATION
  Report Type: Report from Study
  Country: US (occurrence: US)
  Receive Date: 20140322
  Receipt Date: 20140322
  Transmission Date: 20141002
  Serious: Yes (Other)
  Sender: FDA-Public Use
  Company Number: US-ROCHE-1369585

PATIENT
  Sex: 0

DRUGS (9)
  1. RITUXIMAB [Suspect]
     Indication: B-CELL LYMPHOMA
     Dosage: ON DAY -8 OR -7 BEFORE ALLO-SCT
     Route: 065
  2. RITUXIMAB [Suspect]
     Dosage: POSTEALLO-SCT, FOR 4 DOSES BEGINNING DAY -21 +/-2 DAYS
     Route: 065
  3. MYCOPHENOLATE MOFETIL [Suspect]
     Indication: PROPHYLAXIS AGAINST GRAFT VERSUS HOST DISEASE
     Route: 065
  4. CYCLOPHOSPHAMIDE [Suspect]
     Indication: B-CELL LYMPHOMA
     Dosage: FOR 1 DOSE ON DAY -6
     Route: 065
  5. FLUDARABINE [Suspect]
     Indication: B-CELL LYMPHOMA
     Dosage: DAILY FROM DAY -6 TODAY -2
     Route: 042
  6. CICLOSPORIN [Suspect]
     Indication: PROPHYLAXIS AGAINST GRAFT VERSUS HOST DISEASE
     Route: 065
  7. TACROLIMUS [Suspect]
     Indication: PROPHYLAXIS AGAINST GRAFT VERSUS HOST DISEASE
     Route: 065
  8. SIROLIMUS [Suspect]
     Indication: PROPHYLAXIS AGAINST GRAFT VERSUS HOST DISEASE
     Route: 065
  9. METHOTREXATE [Suspect]
     Indication: PROPHYLAXIS AGAINST GRAFT VERSUS HOST DISEASE
     Dosage: FOR 3 DOSES
     Route: 065

REACTIONS (1)
  - Febrile neutropenia [Recovered/Resolved]
